FAERS Safety Report 6497839-8 (Version None)
Quarter: 2009Q4

REPORT INFORMATION
  Report Type: 
  Country: None (occurrence: None)
  Receive Date: 20091125
  Receipt Date: 20081209
  Transmission Date: 20100525
  Serious: Yes (Other)
  Sender: FDA-Public Use
  Company Number: 2008BH012544

PATIENT
  Age: 41 Year
  Sex: Female
  Weight: 98.9 kg

DRUGS (10)
  1. DIANEAL [Suspect]
     Indication: PERITONEAL DIALYSIS
     Dosage: 13 L ; EVERY DAY ; IP
     Route: 033
     Dates: start: 20060613
  2. DEPAKOTE ER [Concomitant]
  3. DESOXIMETASONE [Concomitant]
  4. EPOGEN [Concomitant]
  5. LEXAPRO [Concomitant]
  6. NORVASC [Concomitant]
  7. LYRICA [Concomitant]
  8. PHOSLO [Concomitant]
  9. ROCALTROL [Concomitant]
  10. SENSIPAR [Concomitant]

REACTIONS (2)
  - PERITONEAL DIALYSIS COMPLICATION [None]
  - PERITONITIS [None]
